FAERS Safety Report 12976417 (Version 1)
Quarter: 2016Q4

REPORT INFORMATION
  Report Type: Report from Study
  Country: US (occurrence: US)
  Receive Date: 20161127
  Receipt Date: 20161127
  Transmission Date: 20170207
  Serious: No
  Sender: FDA-Public Use
  Company Number: US-AMGEN-USASL2016162962

PATIENT
  Age: 42 Year
  Sex: Female

DRUGS (1)
  1. ENBREL [Suspect]
     Active Substance: ETANERCEPT
     Indication: ANKYLOSING SPONDYLITIS
     Dosage: UNK
     Route: 065

REACTIONS (5)
  - Malaise [Unknown]
  - Injection site erythema [Not Recovered/Not Resolved]
  - Skin mass [Unknown]
  - Pain [Unknown]
  - Acne [Unknown]

NARRATIVE: CASE EVENT DATE: 201611
